FAERS Safety Report 7408999 (Version 3)
Quarter: 2013Q3

REPORT INFORMATION
  Report Type: Spontaneous
  Country: PL (occurrence: None)
  Receive Date: 20100527
  Receipt Date: 20130906
  Transmission Date: 20140515
  Serious: Yes (Hospitalization, Other)
  Sender: FDA-Public Use
  Company Number: 2010001931

PATIENT
  Age: 74 Year
  Sex: Female

DRUGS (13)
  1. TARCEVA [Suspect]
     Indication: NON-SMALL CELL LUNG CANCER
     Dosage: 150 MG, UID/QD, ORAL
     Route: 048
     Dates: start: 20090129
  2. PHENYLBUTAZONE [Suspect]
     Indication: PHLEBITIS
     Dosage: TOPICAL
     Route: 061
     Dates: start: 20090324
  3. HEPARIN [Suspect]
     Indication: PHLEBITIS
     Dosage: TOPICAL
     Route: 061
     Dates: start: 20090324
  4. FLUMETHASONE PIVALATE [Suspect]
     Indication: SKIN DISORDER
     Dosage: TOPICAL
     Route: 061
     Dates: start: 200902
  5. CLODRONIC ACID (CLODRONIC ACID) [Concomitant]
  6. ASPIRIN (ACETYLSALICYLIC ACID) [Concomitant]
  7. HEPATIL (ORNITHINE ASPARTATE) [Concomitant]
  8. BISOPROLOL FUMARATE [Concomitant]
  9. HEPAREGEN (TIMONACIC) [Concomitant]
  10. CISPLATIN [Concomitant]
  11. ETOPOSIDE [Concomitant]
  12. DIUVER (TORASEMIDE) [Concomitant]
  13. NOLPAZA (PANTOPRAZOLE SODIUM SESQUIHYDRATE) [Concomitant]

REACTIONS (12)
  - Dressler^s syndrome [None]
  - Pneumonia [None]
  - Myocardial infarction [None]
  - Skin infection [None]
  - Inflammation [None]
  - Rash [None]
  - Diarrhoea [None]
  - Alanine aminotransferase increased [None]
  - Aspartate aminotransferase increased [None]
  - Blood bilirubin increased [None]
  - Blood alkaline phosphatase increased [None]
  - Phlebitis [None]
